FAERS Safety Report 10237660 (Version 2)
Quarter: 2014Q2

REPORT INFORMATION
  Report Type: Spontaneous
  Country: JP (occurrence: JP)
  Receive Date: 20140616
  Receipt Date: 20140626
  Transmission Date: 20141212
  Serious: Yes (Other)
  Sender: FDA-Public Use
  Company Number: JP-009507513-1406JPN004799

PATIENT
  Sex: Male

DRUGS (1)
  1. TEMODAL [Suspect]
     Dosage: 150 MG, QD
     Route: 048
     Dates: start: 201309, end: 201403

REACTIONS (2)
  - Leukoencephalopathy [Unknown]
  - Dysphagia [Unknown]
